FAERS Safety Report 12418767 (Version 1)
Quarter: 2016Q2

REPORT INFORMATION
  Report Type: Spontaneous
  Country: NL (occurrence: NL)
  Receive Date: 20160531
  Receipt Date: 20160531
  Transmission Date: 20160815
  Serious: Yes (Death)
  Sender: FDA-Public Use
  Company Number: NL-AUROBINDO-AUR-APL-2016-06277

PATIENT
  Age: 60 Year
  Sex: Male
  Weight: 80 kg

DRUGS (2)
  1. FLECAINIDE-ACETAAT AUROBINDO 50 MG TABLET [Suspect]
     Active Substance: FLECAINIDE ACETATE
     Indication: ARRHYTHMIA
     Dosage: 1 DF, TWO TIMES A DAY, 2 KEER PER DAG 1 STUK(S)
     Route: 048
     Dates: start: 20150101
  2. SOTALOL. [Interacting]
     Active Substance: SOTALOL
     Indication: ARRHYTHMIA
     Dosage: 1 DF, TWO TIMES A DAY, 2 KEER PER DAG 1 STUK(S)
     Route: 048
     Dates: start: 20150101

REACTIONS (2)
  - Drug interaction [Fatal]
  - Myocardial infarction [Fatal]

NARRATIVE: CASE EVENT DATE: 20150310
